FAERS Safety Report 21041324 (Version 1)
Quarter: 2022Q3

REPORT INFORMATION
  Report Type: Spontaneous
  Country: US (occurrence: US)
  Receive Date: 20220705
  Receipt Date: 20220705
  Transmission Date: 20221027
  Serious: Yes (Hospitalization, Other)
  Sender: FDA-Public Use
  Company Number: US-PBT-004830

PATIENT
  Age: 73 Year
  Sex: Female

DRUGS (3)
  1. TACROLIMUS [Suspect]
     Active Substance: TACROLIMUS
     Indication: Prophylaxis against transplant rejection
     Route: 065
     Dates: start: 1999
  2. TACROLIMUS [Suspect]
     Active Substance: TACROLIMUS
     Indication: Prophylaxis against transplant rejection
     Dosage: 28 NG/ML
     Route: 065
     Dates: start: 202108
  3. TACROLIMUS [Suspect]
     Active Substance: TACROLIMUS
     Indication: Prophylaxis against transplant rejection
     Dosage: TROUGH LEVEL WAS 9.7 NG/ML
     Route: 065

REACTIONS (5)
  - Renal tubular necrosis [Unknown]
  - Acute kidney injury [Unknown]
  - Toxicity to various agents [Unknown]
  - Renal-limited thrombotic microangiopathy [Unknown]
  - Human herpesvirus 6 infection [Unknown]

NARRATIVE: CASE EVENT DATE: 20210101
